FAERS Safety Report 25078634 (Version 1)
Quarter: 2025Q1

REPORT INFORMATION
  Report Type: Spontaneous
  Country: US (occurrence: US)
  Receive Date: 20250314
  Receipt Date: 20250314
  Transmission Date: 20250409
  Serious: No
  Sender: SANOFI AVENTIS
  Company Number: US-SA-2025SA075163

PATIENT
  Age: 70 Year
  Sex: Male
  Weight: 100 kg

DRUGS (15)
  1. DUPIXENT [Suspect]
     Active Substance: DUPILUMAB
     Indication: Asthma
     Dosage: 300.000MG QOW
     Route: 058
     Dates: start: 20250118
  2. GABAPENTIN [Concomitant]
     Active Substance: GABAPENTIN
  3. ANORO ELLIPTA [Concomitant]
     Active Substance: UMECLIDINIUM BROMIDE\VILANTEROL TRIFENATATE
  4. TADALAFIL [Concomitant]
     Active Substance: TADALAFIL
  5. SERTRALINE HYDROCHLORIDE [Concomitant]
     Active Substance: SERTRALINE HYDROCHLORIDE
  6. BUPROPION [Concomitant]
     Active Substance: BUPROPION
  7. EZETIMIBE [Concomitant]
     Active Substance: EZETIMIBE
  8. LOSARTAN POTASSIUM [Concomitant]
     Active Substance: LOSARTAN POTASSIUM
  9. ROSUVASTATIN CALCIUM [Concomitant]
     Active Substance: ROSUVASTATIN CALCIUM
  10. HYDROCHLOROTHIAZIDE [Concomitant]
     Active Substance: HYDROCHLOROTHIAZIDE
  11. DULOXETINE HYDROCHLORIDE [Concomitant]
     Active Substance: DULOXETINE HYDROCHLORIDE
  12. CELECOXIB [Concomitant]
     Active Substance: CELECOXIB
  13. Bromfenac;Prednisolone [Concomitant]
  14. LATANOPROST [Concomitant]
     Active Substance: LATANOPROST
  15. TAMSULOSIN HYDROCHLORIDE [Concomitant]
     Active Substance: TAMSULOSIN HYDROCHLORIDE

REACTIONS (2)
  - Injection site pain [Unknown]
  - Eye operation [Unknown]

NARRATIVE: CASE EVENT DATE: 20250101
